FAERS Safety Report 4504548-0 (Version None)
Quarter: 2004Q4

REPORT INFORMATION
  Report Type: 
  Country: None (occurrence: None)
  Receive Date: 20041116
  Receipt Date: 20041104
  Transmission Date: 20050328
  Serious: Yes (Other)
  Sender: FDA-Public Use
  Company Number: 2004090162

PATIENT
  Age: 22 Year
  Sex: Female
  Weight: 77.1115 kg

DRUGS (2)
  1. BEXTRA [Suspect]
     Indication: ILL-DEFINED DISORDER
     Dosage: 10 MG (10 MG, QD INTERVAL: EVERY
     Dates: start: 20041102
  2. MEDROXYPROGESTERONE ACETATE [Concomitant]

REACTIONS (6)
  - CHROMATURIA [None]
  - DRUG HYPERSENSITIVITY [None]
  - HEADACHE [None]
  - LYMPHADENOPATHY [None]
  - PHARYNGOLARYNGEAL PAIN [None]
  - SYNCOPE [None]
